FAERS Safety Report 5617273-X (Version None)
Quarter: 2008Q1

REPORT INFORMATION
  Report Type: 
  Country: None (occurrence: None)
  Receive Date: 20080207
  Receipt Date: 20070625
  Transmission Date: 20080703
  Serious: No
  Sender: FDA-Public Use
  Company Number: A0659981A

PATIENT
  Age: 31 Year
  Sex: Male

DRUGS (5)
  1. PAXIL [Suspect]
     Dosage: 60MG PER DAY
     Route: 048
     Dates: start: 19980101
  2. KLONOPIN [Concomitant]
  3. PRAVACHOL [Concomitant]
  4. INDERAL [Concomitant]
  5. PAROXETINE [Concomitant]

REACTIONS (7)
  - ANXIETY [None]
  - DEPRESSED MOOD [None]
  - FATIGUE [None]
  - HEADACHE [None]
  - HEART RATE INCREASED [None]
  - PAIN [None]
  - PANIC ATTACK [None]
